FAERS Safety Report 12783838 (Version 2)
Quarter: 2016Q4

REPORT INFORMATION
  Report Type: Spontaneous
  Country: DE (occurrence: DE)
  Receive Date: 20160927
  Receipt Date: 20161007
  Transmission Date: 20170207
  Serious: Yes (Hospitalization)
  Sender: FDA-Public Use
  Company Number: DE-JNJFOC-20160923011

PATIENT
  Age: 32 Year
  Sex: Female
  Weight: 76 kg

DRUGS (4)
  1. BONDRONAT [Concomitant]
     Active Substance: IBANDRONIC ACID
     Indication: SOFT TISSUE SARCOMA
     Route: 065
     Dates: start: 20160519
  2. DOXORUBICIN HYDROCHLORIDE. [Suspect]
     Active Substance: DOXORUBICIN HYDROCHLORIDE
     Indication: SOFT TISSUE SARCOMA
     Dosage: DAY 1 OF EACH CYCLE
     Route: 042
     Dates: start: 20160520, end: 20160726
  3. BISOPROLOL [Concomitant]
     Active Substance: BISOPROLOL
     Indication: MITRAL VALVE REPLACEMENT
     Route: 065
     Dates: start: 20150314
  4. ACETYLSALICYLIC ACID [Concomitant]
     Active Substance: ASPIRIN
     Indication: MITRAL VALVE REPLACEMENT
     Route: 065
     Dates: start: 20150314

REACTIONS (1)
  - Mitral valve stenosis [Unknown]

NARRATIVE: CASE EVENT DATE: 20160817
